FAERS Safety Report 9455965 (Version 1)
Quarter: 2013Q3

REPORT INFORMATION
  Report Type: Spontaneous
  Country: BE (occurrence: BE)
  Receive Date: 20130813
  Receipt Date: 20130813
  Transmission Date: 20140515
  Serious: Yes (Hospitalization)
  Sender: FDA-Public Use
  Company Number: BE-009507513-1307BEL016717

PATIENT
  Age: 33 Year
  Sex: Female
  Weight: 46.5 kg

DRUGS (1)
  1. NUVARING [Suspect]
     Dosage: UNK
     Route: 067
     Dates: start: 200604

REACTIONS (3)
  - Vaginal polyp [Recovered/Resolved]
  - Coital bleeding [Not Recovered/Not Resolved]
  - Medical device discomfort [Not Recovered/Not Resolved]
